FAERS Safety Report 18114205 (Version 1)
Quarter: 2020Q3

REPORT INFORMATION
  Report Type: Spontaneous
  Country: CN (occurrence: CN)
  Receive Date: 20200805
  Receipt Date: 20200805
  Transmission Date: 20201103
  Serious: Yes (Hospitalization)
  Sender: FDA-Public Use
  Company Number: CN-ASTRAZENECA-2020SE96394

PATIENT
  Age: 17303 Day
  Sex: Male
  Weight: 77 kg

DRUGS (3)
  1. BRILINTA [Suspect]
     Active Substance: TICAGRELOR
     Indication: ACUTE MYOCARDIAL INFARCTION
     Route: 048
     Dates: start: 20200424, end: 20200608
  2. BETALOC [Suspect]
     Active Substance: METOPROLOL TARTRATE
     Indication: ARTERIOSCLEROSIS CORONARY ARTERY
     Route: 048
     Dates: start: 20200424, end: 20200427
  3. BETALOC [Suspect]
     Active Substance: METOPROLOL TARTRATE
     Indication: CARDIOMYOPATHY
     Route: 048
     Dates: start: 20200424, end: 20200427

REACTIONS (4)
  - Sinus arrest [Recovering/Resolving]
  - Ventricular extrasystoles [Unknown]
  - Electrocardiogram RR interval prolonged [Recovering/Resolving]
  - Bradycardia [Unknown]

NARRATIVE: CASE EVENT DATE: 20200427
